FAERS Safety Report 21072332 (Version 1)
Quarter: 2022Q3

REPORT INFORMATION
  Report Type: Spontaneous
  Country: US (occurrence: None)
  Receive Date: 20220712
  Receipt Date: 20220712
  Transmission Date: 20221026
  Serious: Yes (Hospitalization)
  Sender: FDA-Public Use
  Company Number: None

PATIENT
  Sex: Male

DRUGS (1)
  1. DROXIDOPA [Suspect]
     Active Substance: DROXIDOPA
     Indication: Autonomic nervous system imbalance
     Dosage: 100 MG?TAKE 2 CAPSULES BY MOUTH THREE TIMES DAILY (TAKE AT 8A, 12 NOON, AND 5PM)?
     Route: 048
     Dates: start: 20210303

REACTIONS (1)
  - Urinary tract infection [None]
